FAERS Safety Report 4760226-4 (Version None)
Quarter: 2005Q3

REPORT INFORMATION
  Report Type: 
  Country: None (occurrence: None)
  Receive Date: 20050902
  Receipt Date: 20050826
  Transmission Date: 20060218
  Serious: Yes (Other)
  Sender: FDA-Public Use
  Company Number: US-JNJFOC-20050806561

PATIENT
  Age: 8 Year

DRUGS (1)
  1. DITROPAN XL [Suspect]
     Route: 048

REACTIONS (3)
  - CONFUSIONAL STATE [None]
  - HALLUCINATION [None]
  - MOOD ALTERED [None]
